FAERS Safety Report 7992933-4 (Version None)
Quarter: 2011Q4

REPORT INFORMATION
  Report Type: 
  Country: None (occurrence: None)
  Receive Date: 20111219
  Receipt Date: 20110110
  Transmission Date: 20120403
  Serious: No
  Sender: FDA-Public Use
  Company Number: US-ASTRAZENECA-2011SE02166

PATIENT
  Age: 54 Year
  Sex: Female
  Weight: 77.1 kg

DRUGS (4)
  1. BENICAR [Concomitant]
     Indication: HYPERTENSION
  2. IBUPROFEN (ADVIL) [Concomitant]
  3. CRESTOR [Suspect]
     Indication: HYPERCHOLESTEROLAEMIA
     Route: 048
     Dates: start: 20090101
  4. DEXILANT [Concomitant]
     Indication: GASTROOESOPHAGEAL REFLUX DISEASE

REACTIONS (2)
  - FOOT DEFORMITY [None]
  - MUSCLE SPASMS [None]
